FAERS Safety Report 15617577 (Version 1)
Quarter: 2018Q4

REPORT INFORMATION
  Report Type: Spontaneous
  Country: US (occurrence: US)
  Receive Date: 20181114
  Receipt Date: 20181114
  Transmission Date: 20190205
  Serious: Yes (Other)
  Sender: FDA-Public Use
  Company Number: None

PATIENT
  Age: 40 Year
  Weight: 79.74 kg

DRUGS (6)
  1. LAMICTAL [Concomitant]
     Active Substance: LAMOTRIGINE
  2. ESCITALOPRAM [Concomitant]
     Active Substance: ESCITALOPRAM OXALATE
  3. PANTOPRAZOLE [Concomitant]
     Active Substance: PANTOPRAZOLE
  4. GLEOSTINE [Suspect]
     Active Substance: LOMUSTINE
     Indication: PRODUCT USED FOR UNKNOWN INDICATION
     Route: 048
     Dates: start: 20180822, end: 20181113
  5. VIMPAT [Concomitant]
     Active Substance: LACOSAMIDE
  6. DEXAMETHASONE. [Concomitant]
     Active Substance: DEXAMETHASONE

REACTIONS (1)
  - Disease progression [None]

NARRATIVE: CASE EVENT DATE: 20181114
